FAERS Safety Report 5813220-6 (Version None)
Quarter: 2008Q3

REPORT INFORMATION
  Report Type: 
  Country: None (occurrence: None)
  Receive Date: 20080717
  Receipt Date: 20080507
  Transmission Date: 20090109
  Serious: No
  Sender: FDA-Public Use
  Company Number: A0726759A

PATIENT
  Age: 58 Year
  Sex: Female

DRUGS (1)
  1. NICORETTE [Suspect]
     Dates: start: 20080423, end: 20080424

REACTIONS (6)
  - CHEST DISCOMFORT [None]
  - COUGH [None]
  - INCREASED UPPER AIRWAY SECRETION [None]
  - NONSPECIFIC REACTION [None]
  - RESPIRATORY TRACT CONGESTION [None]
  - THROAT TIGHTNESS [None]
